FAERS Safety Report 17299478 (Version 1)
Quarter: 2020Q1

REPORT INFORMATION
  Report Type: Spontaneous
  Country: PE (occurrence: PE)
  Receive Date: 20200121
  Receipt Date: 20200121
  Transmission Date: 20200409
  Serious: Yes (Other)
  Sender: FDA-Public Use
  Company Number: PE-US-PROVELL PHARMACEUTICALS LLC-9140703

PATIENT
  Sex: Female

DRUGS (1)
  1. LEVOTHYROXINE. [Suspect]
     Active Substance: LEVOTHYROXINE
     Indication: THYROID DISORDER

REACTIONS (8)
  - Carotid intima-media thickness increased [Unknown]
  - Thrombosis [Unknown]
  - Hepatic steatosis [Unknown]
  - Hypertension [Unknown]
  - Metabolic disorder [Unknown]
  - Rheumatic disorder [Unknown]
  - Cardiovascular disorder [Unknown]
  - Osteoporosis [Unknown]
